FAERS Safety Report 7001444-4 (Version None)
Quarter: 2010Q3

REPORT INFORMATION
  Report Type: 
  Country: None (occurrence: None)
  Receive Date: 20100920
  Receipt Date: 20100514
  Transmission Date: 20110219
  Serious: No
  Sender: FDA-Public Use
  Company Number: US-ASTRAZENECA-2005UW00419

PATIENT
  Age: 64 Year
  Sex: Female
  Weight: 79.4 kg

DRUGS (8)
  1. SEROQUEL [Suspect]
     Indication: SCHIZOPHRENIA
     Route: 048
     Dates: start: 20040801
  2. SEROQUEL [Suspect]
     Indication: HALLUCINATION, AUDITORY
     Route: 048
     Dates: start: 20040801
  3. RISPERDAL [Concomitant]
     Route: 048
  4. PAXIL [Concomitant]
     Route: 048
  5. IBUPROFEN [Concomitant]
  6. VITAMINS [Concomitant]
  7. ZOLOFT [Concomitant]
  8. SERTRALINE HYDROCHLORIDE [Concomitant]

REACTIONS (13)
  - CONSTIPATION [None]
  - DEPRESSION [None]
  - DIZZINESS [None]
  - DRY MOUTH [None]
  - FEAR [None]
  - INCREASED APPETITE [None]
  - INSOMNIA [None]
  - MUSCLE SPASMS [None]
  - MUSCLE TWITCHING [None]
  - ORTHOSTATIC HYPOTENSION [None]
  - SKIN DISCOLOURATION [None]
  - SOMNOLENCE [None]
  - WEIGHT INCREASED [None]
